FAERS Safety Report 6003683-8 (Version None)
Quarter: 2008Q4

REPORT INFORMATION
  Report Type: 
  Country: None (occurrence: None)
  Receive Date: 20081212
  Receipt Date: 20081212
  Transmission Date: 20090506
  Serious: Yes (Disabling)
  Sender: FDA-Public Use
  Company Number: None

PATIENT
  Age: 56 Year
  Sex: Male
  Weight: 78.4723 kg

DRUGS (11)
  1. TAXOTERE [Suspect]
     Indication: METASTATIC GASTRIC CANCER
     Dosage: 150 MG EVERY 21 DAYS IV DRIP FOUR CYCLES
     Route: 041
     Dates: start: 20080922, end: 20081203
  2. TAXOTERE [Suspect]
  3. TAXOTERE [Suspect]
  4. TAXOTERE [Suspect]
  5. DEXAMETHASONE [Concomitant]
  6. ONDANSETRON [Concomitant]
  7. FAMOTIDINE [Concomitant]
  8. DIPHENHYDRAMINE HCL [Concomitant]
  9. MANNITOL [Concomitant]
  10. CISPLATIN [Concomitant]
  11. XELODA [Concomitant]

REACTIONS (4)
  - ABDOMINAL PAIN UPPER [None]
  - DIZZINESS [None]
  - ERYTHEMA [None]
  - INFUSION RELATED REACTION [None]
